FAERS Safety Report 7801864-1 (Version None)
Quarter: 2011Q4

REPORT INFORMATION
  Report Type: 
  Country: None (occurrence: None)
  Receive Date: 20111007
  Receipt Date: 20111005
  Transmission Date: 20120403
  Serious: Yes (Death)
  Sender: FDA-Public Use
  Company Number: ZA-B.I. PHARMACEUTICALS,INC./RIDGEFIELD-2011-AP-00532ZA

PATIENT
  Age: 67 Year
  Sex: Male

DRUGS (7)
  1. RAZON [Concomitant]
  2. ACETAMINOPHEN [Concomitant]
  3. MAXILON [Concomitant]
  4. SINUFORTE [Concomitant]
  5. ZINACEF [Concomitant]
  6. MORPHINE [Concomitant]
  7. PRADAXA [Suspect]
     Dosage: 110 MG
     Route: 048
     Dates: start: 20110627

REACTIONS (1)
  - PULMONARY EMBOLISM [None]
